FAERS Safety Report 7393120-3 (Version None)
Quarter: 2011Q2

REPORT INFORMATION
  Report Type: 
  Country: None (occurrence: None)
  Receive Date: 20110404
  Receipt Date: 20110330
  Transmission Date: 20111010
  Serious: Yes (Other)
  Sender: FDA-Public Use
  Company Number: US-MERCK-0703USA03517

PATIENT
  Sex: Male

DRUGS (2)
  1. JANUVIA [Suspect]
     Route: 048
     Dates: start: 20110101, end: 20110217
  2. JANUVIA [Suspect]
     Indication: TYPE 2 DIABETES MELLITUS
     Route: 048

REACTIONS (2)
  - CARDIAC DISORDER [None]
  - HYPOGLYCAEMIA [None]
